FAERS Safety Report 8887159 (Version 2)
Quarter: 2013Q3

REPORT INFORMATION
  Report Type: Spontaneous
  Country: GB (occurrence: GB)
  Receive Date: 20121105
  Receipt Date: 20130926
  Transmission Date: 20140515
  Serious: Yes (Life-Threatening, Hospitalization, Other)
  Sender: FDA-Public Use
  Company Number: GB-ASTRAZENECA-2012SE83233

PATIENT
  Age: 26298 Day
  Sex: 0

DRUGS (10)
  1. PIPERACILLIN AND TAZOBACTAM [Suspect]
     Indication: PNEUMONIA
     Route: 041
     Dates: start: 20110420, end: 20110425
  2. MEROPENEM [Suspect]
     Indication: PANCREATITIS NECROTISING
     Route: 041
     Dates: start: 20110309, end: 20110313
  3. TAZOBACTAM [Suspect]
     Route: 041
  4. CEFTRIAXONE [Suspect]
     Indication: PANCREATITIS
     Route: 041
     Dates: start: 20110308, end: 20110308
  5. CO-AMOXICLAV [Suspect]
     Indication: SEPSIS
     Route: 041
     Dates: start: 20110328, end: 20110403
  6. ERYTHROMYCIN [Suspect]
     Route: 042
     Dates: start: 20110319, end: 20110321
  7. FLUCLOXACILLIN [Suspect]
     Route: 048
     Dates: start: 20100908
  8. METRONIDAZOLE [Suspect]
     Route: 041
     Dates: start: 20110308, end: 20110308
  9. CEFUROXIME [Suspect]
     Route: 041
     Dates: start: 20110308, end: 20110308
  10. TRIMETHOPRIM [Suspect]
     Indication: URINARY TRACT INFECTION
     Route: 048
     Dates: start: 20110305, end: 20110305

REACTIONS (1)
  - Clostridium test positive [Recovered/Resolved]
